FAERS Safety Report 4678917-2 (Version None)
Quarter: 2005Q2

REPORT INFORMATION
  Report Type: 
  Country: None (occurrence: None)
  Receive Date: 20050531
  Receipt Date: 20050518
  Transmission Date: 20051028
  Serious: Yes (Death)
  Sender: FDA-Public Use
  Company Number: MK200505-0253-1

PATIENT
  Age: 27 Year
  Weight: 86.1834 kg

DRUGS (1)
  1. METHADOSE [Suspect]
     Indication: DEPENDENCE
     Dosage: 60 MG, Q D, PO
     Route: 048
     Dates: start: 20021031, end: 20021106

REACTIONS (1)
  - OVERDOSE [None]
